FAERS Safety Report 9020055 (Version 1)
Quarter: 2013Q1

REPORT INFORMATION
  Report Type: Spontaneous
  Country: US (occurrence: US)
  Receive Date: 20130119
  Receipt Date: 20130119
  Transmission Date: 20140127
  Serious: No
  Sender: FDA-Public Use
  Company Number: US-ALLERGAN-1211103US

PATIENT
  Age: 52 Year
  Sex: Female

DRUGS (4)
  1. BOTOX COSMETIC [Suspect]
     Indication: SKIN WRINKLING
     Dosage: 55 UNITS, SINGLE
     Route: 030
     Dates: start: 20120730, end: 20120730
  2. BOTOX COSMETIC [Suspect]
     Indication: SKIN WRINKLING
  3. HYDRAZINE [Concomitant]
     Indication: DEPRESSION
  4. CLONAZEPAM [Concomitant]
     Indication: ANXIETY

REACTIONS (5)
  - Adverse event [Unknown]
  - Nausea [Unknown]
  - Myalgia [Unknown]
  - Fatigue [Unknown]
  - Anxiety [Unknown]
